FAERS Safety Report 8988922 (Version 2)
Quarter: 2013Q1

REPORT INFORMATION
  Report Type: Spontaneous
  Country: US (occurrence: US)
  Receive Date: 20121228
  Receipt Date: 20130301
  Transmission Date: 20140127
  Serious: Yes (Death, Hospitalization, Other)
  Sender: FDA-Public Use
  Company Number: PHEH2012US025432

PATIENT
  Age: 82 Year
  Sex: Male

DRUGS (8)
  1. GLEEVEC [Suspect]
     Indication: CHRONIC MYELOID LEUKAEMIA
     Dosage: 400 MG, DAILY
     Route: 048
     Dates: start: 20080204
  2. MEGACE [Concomitant]
     Dosage: UNK UKN, UNK
  3. PROCRIT [Concomitant]
     Dosage: UNK UKN, UNK
  4. FIRMAGON//DEGARELIX [Concomitant]
     Dosage: UNK UKN, UNK
  5. VICODIN [Concomitant]
     Dosage: UNK UKN, UNK
  6. DETROL [Concomitant]
     Dosage: UNK UKN, UNK
  7. NEXIUM 1-2-3 [Concomitant]
     Dosage: UNK UKN, UNK
  8. FOLIC ACID [Concomitant]
     Dosage: UNK UKN, UNK

REACTIONS (15)
  - Death [Fatal]
  - Sepsis [Unknown]
  - Small intestinal obstruction [Unknown]
  - Abdominal pain [Unknown]
  - Abdominal distension [Unknown]
  - Vomiting [Unknown]
  - Febrile neutropenia [Unknown]
  - Anaemia [Unknown]
  - Blood lactate dehydrogenase increased [Unknown]
  - Neutropenia [Unknown]
  - Disorientation [Unknown]
  - Cachexia [Unknown]
  - Rales [Unknown]
  - Decreased appetite [Unknown]
  - Malaise [Unknown]
